FAERS Safety Report 13996450 (Version 2)
Quarter: 2017Q4

REPORT INFORMATION
  Report Type: Spontaneous
  Country: BG (occurrence: BG)
  Receive Date: 20170921
  Receipt Date: 20171016
  Transmission Date: 20180321
  Serious: Yes (Hospitalization, Other)
  Sender: FDA-Public Use
  Company Number: BG-GLAXOSMITHKLINE-BG2017GSK145586

PATIENT
  Age: 2 Year
  Sex: Male

DRUGS (1)
  1. VENTOLIN [Suspect]
     Active Substance: ALBUTEROL SULFATE
     Indication: PNEUMONIA
     Dosage: 5 MG, UNK
     Dates: start: 201709

REACTIONS (5)
  - Accidental overdose [Unknown]
  - Pneumonitis [Recovered/Resolved]
  - Hypoxia [Recovered/Resolved]
  - Muscle spasms [Recovered/Resolved]
  - Asthma [Unknown]

NARRATIVE: CASE EVENT DATE: 201709
